FAERS Safety Report 4369319-7 (Version None)
Quarter: 2004Q2

REPORT INFORMATION
  Report Type: 
  Country: None (occurrence: None)
  Receive Date: 20040602
  Receipt Date: 20040526
  Transmission Date: 20050107
  Serious: Yes (Other)
  Sender: FDA-Public Use
  Company Number: 04-00257

PATIENT
  Age: 64 Year
  Sex: Female
  Weight: 58.9676 kg

DRUGS (4)
  1. TICLOPIDINE HCL [Suspect]
     Indication: STENT PLACEMENT
     Dosage: 250MG, TWICE DAILY, ORAL
     Route: 048
     Dates: start: 20040519, end: 20040521
  2. PLAVIX [Suspect]
     Indication: STENT PLACEMENT
     Dates: start: 20040501, end: 20040501
  3. ZANTAC [Concomitant]
  4. PRILOSEC [Concomitant]

REACTIONS (4)
  - CARDIAC DISORDER [None]
  - CHEST PAIN [None]
  - PAIN IN JAW [None]
  - RASH [None]
